FAERS Safety Report 16539716 (Version 2)
Quarter: 2019Q3

REPORT INFORMATION
  Report Type: Spontaneous
  Country: US (occurrence: US)
  Receive Date: 20190708
  Receipt Date: 20190802
  Transmission Date: 20191004
  Serious: No
  Sender: FDA-Public Use
  Company Number: US-PFIZER INC-2019287086

PATIENT
  Age: 73 Year
  Sex: Female
  Weight: 43 kg

DRUGS (2)
  1. LETROZOLE. [Concomitant]
     Active Substance: LETROZOLE
     Indication: BREAST CANCER FEMALE
     Dosage: 2.5 MG, DAILY
     Dates: start: 201710, end: 20190607
  2. IBRANCE [Suspect]
     Active Substance: PALBOCICLIB
     Indication: BREAST CANCER METASTATIC
     Dosage: 75 MG, CYCLIC [DAILY 21 DAYS AND OFF FOR 7 DAYS]
     Route: 048
     Dates: start: 201710, end: 20190607

REACTIONS (1)
  - Neoplasm progression [Unknown]
